FAERS Safety Report 7981255-3 (Version None)
Quarter: 2011Q4

REPORT INFORMATION
  Report Type: 
  Country: None (occurrence: None)
  Receive Date: 20111215
  Receipt Date: 20111212
  Transmission Date: 20120403
  Serious: Yes (Other)
  Sender: FDA-Public Use
  Company Number: US-PFIZER INC-2011035922

PATIENT
  Sex: Female

DRUGS (8)
  1. LYRICA [Suspect]
     Indication: NEUROPATHY PERIPHERAL
  2. SIMVASTATIN [Concomitant]
     Indication: BLOOD CHOLESTEROL INCREASED
     Dosage: UNK
  3. LANTUS [Concomitant]
     Indication: TYPE 2 DIABETES MELLITUS
     Dosage: UNK
  4. LYRICA [Suspect]
     Indication: NEURALGIA
     Dosage: 150 MG, 2X/DAY
     Route: 048
     Dates: start: 20100101
  5. TIMOLOL [Concomitant]
     Indication: TYPE 2 DIABETES MELLITUS
     Dosage: UNK
  6. LYRICA [Suspect]
     Indication: ABDOMINAL PAIN
     Dosage: 75 MG, 1X/DAY
     Route: 048
  7. LEVOTHYROXINE [Concomitant]
     Indication: HYPERTHYROIDISM
     Dosage: UNK
  8. METFORMIN [Concomitant]
     Indication: TYPE 2 DIABETES MELLITUS
     Dosage: UNK

REACTIONS (5)
  - BURNING SENSATION [None]
  - MIDDLE INSOMNIA [None]
  - PAIN IN EXTREMITY [None]
  - AMNESIA [None]
  - HYPOAESTHESIA [None]
